FAERS Safety Report 12266638 (Version 2)
Quarter: 2020Q2

REPORT INFORMATION
  Report Type: Spontaneous
  Country: US (occurrence: US)
  Receive Date: 20160414
  Receipt Date: 20200521
  Transmission Date: 20200713
  Serious: No
  Sender: FDA-Public Use
  Company Number: US-TEVA-582516USA

PATIENT
  Age: 73 Year
  Sex: Female
  Weight: 63.56 kg

DRUGS (7)
  1. GABAPENTIN. [Suspect]
     Active Substance: GABAPENTIN
     Indication: TRIGEMINAL NEURALGIA
     Dosage: 3600 MILLIGRAM DAILY; 2 TABLETS, THREE TIMES A DAY
     Route: 048
  2. TRAMADOL. [Concomitant]
     Active Substance: TRAMADOL
     Indication: BURNING MOUTH SYNDROME
     Dosage: 300 MILLIGRAM DAILY; 2 TABLETS, THREE TIMES DAILY
     Route: 048
     Dates: start: 2010
  3. CLOPIDOGREL [Concomitant]
     Active Substance: CLOPIDOGREL BISULFATE
     Indication: ANTICOAGULANT THERAPY
     Dosage: 75 MILLIGRAM DAILY;
     Route: 048
  4. FOLIC ACID. [Concomitant]
     Active Substance: FOLIC ACID
     Indication: BONE DENSITY ABNORMAL
     Dosage: 800 MICROGRAM DAILY;
     Route: 048
  5. CARBAMAZEPINE. [Concomitant]
     Active Substance: CARBAMAZEPINE
     Indication: BURNING MOUTH SYNDROME
     Dosage: NO MORE THAN 2 TABLETS IN 24 HRS, AS NEEDED
     Route: 048
     Dates: start: 2012
  6. CAPTOPRIL. [Concomitant]
     Active Substance: CAPTOPRIL
     Indication: HYPERTENSION
     Dosage: 50 MILLIGRAM DAILY;
     Route: 048
     Dates: start: 2015
  7. LAMOTRIGINE. [Concomitant]
     Active Substance: LAMOTRIGINE
     Indication: BURNING MOUTH SYNDROME
     Dosage: 600 MILLIGRAM DAILY;
     Route: 048
     Dates: start: 2010

REACTIONS (7)
  - Gait disturbance [Not Recovered/Not Resolved]
  - Dizziness [Not Recovered/Not Resolved]
  - Balance disorder [Not Recovered/Not Resolved]
  - Vestibular disorder [Not Recovered/Not Resolved]
  - Off label use [Unknown]
  - Burning mouth syndrome [Not Recovered/Not Resolved]
  - Pain [Not Recovered/Not Resolved]

NARRATIVE: CASE EVENT DATE: 201503
